FAERS Safety Report 12169586 (Version 3)
Quarter: 2016Q2

REPORT INFORMATION
  Report Type: Spontaneous
  Country: FR (occurrence: FR)
  Receive Date: 20160310
  Receipt Date: 20160408
  Transmission Date: 20160815
  Serious: Yes (Life-Threatening, Hospitalization, Other)
  Sender: FDA-Public Use
  Company Number: FR-009507513-1603FRA003876

PATIENT
  Age: 59 Year
  Sex: Male
  Weight: 60 kg

DRUGS (5)
  1. OXYNORMORO [Concomitant]
     Active Substance: OXYCODONE
     Indication: PAIN
     Dosage: 10 MG, PRN
     Dates: start: 20160228
  2. OXYCONTIN [Concomitant]
     Active Substance: OXYCODONE HYDROCHLORIDE
     Indication: PAIN
     Dosage: 30 MG, BID (30 MG IN MORNING AND 30 MG IN EVENING)
     Dates: start: 20160228
  3. KEYTRUDA [Suspect]
     Active Substance: PEMBROLIZUMAB
     Dosage: 2 MG/KG, ONCE (120 MG) [CYCLE 1]
     Route: 041
     Dates: start: 20160118, end: 20160118
  4. LAROXYL [Concomitant]
     Active Substance: AMITRIPTYLINE
     Indication: PAIN
     Dosage: 10 GTT, QPM
     Dates: start: 20160226
  5. KEYTRUDA [Suspect]
     Active Substance: PEMBROLIZUMAB
     Indication: MALIGNANT MELANOMA STAGE III
     Dosage: 2 MG/KG, ONCE (120 MG) [CYCLE 2]
     Route: 041
     Dates: start: 20160208, end: 20160208

REACTIONS (5)
  - Cardiac arrest [Unknown]
  - Neuropathy peripheral [Unknown]
  - Colitis [Recovering/Resolving]
  - Septic shock [Recovering/Resolving]
  - Type III immune complex mediated reaction [Unknown]

NARRATIVE: CASE EVENT DATE: 2016
